FAERS Safety Report 9344686 (Version 1)
Quarter: 2013Q2

REPORT INFORMATION
  Report Type: Spontaneous
  Country: US (occurrence: US)
  Receive Date: 20130612
  Receipt Date: 20130612
  Transmission Date: 20140414
  Serious: Yes (Hospitalization)
  Sender: FDA-Public Use
  Company Number: US-GLAXOSMITHKLINE-A1026522A

PATIENT
  Age: 51 Year
  Sex: Female

DRUGS (1)
  1. BENLYSTA [Suspect]

REACTIONS (13)
  - Pulmonary embolism [Unknown]
  - Chest discomfort [Unknown]
  - Chest pain [Not Recovered/Not Resolved]
  - Pain in jaw [Recovered/Resolved]
  - Dyspnoea [Recovered/Resolved]
  - Clostridium difficile infection [Not Recovered/Not Resolved]
  - Abdominal pain [Unknown]
  - Gastric dilatation [Unknown]
  - Diarrhoea [Not Recovered/Not Resolved]
  - Flatulence [Not Recovered/Not Resolved]
  - Sinusitis [Recovered/Resolved]
  - Pyrexia [Recovered/Resolved]
  - Respiratory disorder [Recovered/Resolved]
